FAERS Safety Report 24330909 (Version 2)
Quarter: 2024Q4

REPORT INFORMATION
  Report Type: Spontaneous
  Country: US (occurrence: US)
  Receive Date: 20240918
  Receipt Date: 20241104
  Transmission Date: 20250115
  Serious: Yes (Other)
  Sender: REGENERON
  Company Number: US-REGENERON PHARMACEUTICALS, INC.-2024-118429

PATIENT
  Sex: Female

DRUGS (1)
  1. EYLEA HD [Suspect]
     Active Substance: AFLIBERCEPT
     Indication: Neovascular age-related macular degeneration
     Dosage: 8 MG, RIGHT EYE, FORMULATION: EYLEA HD VIAL
     Dates: start: 20240716, end: 20240716

REACTIONS (6)
  - Blindness transient [Recovering/Resolving]
  - Retinal occlusive vasculitis [Recovering/Resolving]
  - Uveitis [Recovering/Resolving]
  - Blepharitis [Unknown]
  - Exposure keratitis [Recovered/Resolved]
  - Wrong technique in product usage process [Unknown]

NARRATIVE: CASE EVENT DATE: 20240716
